FAERS Safety Report 5373297-1 (Version None)
Quarter: 2007Q2

REPORT INFORMATION
  Report Type: 
  Country: None (occurrence: None)
  Receive Date: 20070626
  Receipt Date: 20070626
  Transmission Date: 20071010
  Serious: Yes (Other)
  Sender: FDA-Public Use
  Company Number: None

PATIENT
  Age: 53 Year
  Sex: Male
  Weight: 72.5755 kg

DRUGS (7)
  1. VENLAFAXINE HCL [Suspect]
     Indication: ANXIETY
     Dosage: 300MG ONCE DAILY PO
     Route: 048
     Dates: start: 20041001, end: 20070601
  2. VENLAFAXINE HCL [Suspect]
     Indication: DEPRESSION
     Dosage: 300MG ONCE DAILY PO
     Route: 048
     Dates: start: 20041001, end: 20070601
  3. AMITRIPTYLINE HCL [Concomitant]
  4. HYDROCODONE 5/ACETAMINOPHEN [Concomitant]
  5. GABAPENTIN [Concomitant]
  6. IBUPROFEN [Concomitant]
  7. CYCLOBENZAPRINE HCL [Concomitant]

REACTIONS (19)
  - ABDOMINAL PAIN UPPER [None]
  - ANAEMIA [None]
  - ANXIETY [None]
  - ASTHENIA [None]
  - ASTHMA [None]
  - DYSPHAGIA [None]
  - DYSPNOEA [None]
  - EXERCISE TOLERANCE DECREASED [None]
  - FATIGUE [None]
  - GASTRIC DISORDER [None]
  - GASTRIC ULCER [None]
  - GASTROINTESTINAL DISORDER [None]
  - GINGIVAL SWELLING [None]
  - HEART RATE IRREGULAR [None]
  - LOOSE TOOTH [None]
  - OESOPHAGEAL OEDEMA [None]
  - PANIC ATTACK [None]
  - PHARYNGEAL OEDEMA [None]
  - TOOTH LOSS [None]
